FAERS Safety Report 24796306 (Version 2)
Quarter: 2025Q1

REPORT INFORMATION
  Report Type: Spontaneous
  Country: US (occurrence: US)
  Receive Date: 20250101
  Receipt Date: 20250112
  Transmission Date: 20250409
  Serious: Yes (Other)
  Sender: AUROBINDO
  Company Number: US-MLMSERVICE-20241211-PI292620-00117-1

PATIENT
  Age: 37 Year
  Sex: Female

DRUGS (6)
  1. DEXAMETHASONE [Suspect]
     Active Substance: DEXAMETHASONE
     Indication: Hypoglycaemia
     Dosage: 0.75 MILLIGRAM, ONCE A DAY
     Route: 065
  2. DEXAMETHASONE [Suspect]
     Active Substance: DEXAMETHASONE
     Indication: Hypopituitarism
     Dosage: 1 MILLIGRAM, ONCE A DAY
     Route: 065
  3. DEXAMETHASONE [Suspect]
     Active Substance: DEXAMETHASONE
     Dosage: 1.5 MILLIGRAM, ONCE A DAY
     Route: 065
  4. DESMOPRESSIN [Concomitant]
     Active Substance: DESMOPRESSIN
     Indication: Diabetes insipidus
     Dosage: 0.1 MILLIGRAM, ONCE A DAY (0.1 MG NIGHTLY)
     Route: 065
  5. ESTRADIOL [Concomitant]
     Active Substance: ESTRADIOL
     Indication: Product used for unknown indication
     Dosage: 1 MILLIGRAM, ONCE A DAY
     Route: 065
  6. LEVOTHYROXINE [Concomitant]
     Active Substance: LEVOTHYROXINE
     Indication: Hypopituitarism
     Dosage: 175 MICROGRAM, ONCE A DAY (175 MCG NIGHTLY)
     Route: 065

REACTIONS (3)
  - Pseudo Cushing^s syndrome [Unknown]
  - Hyperglycaemia [Unknown]
  - Tri-iodothyronine free decreased [Unknown]
